FAERS Safety Report 4960901-2 (Version None)
Quarter: 2006Q1

REPORT INFORMATION
  Report Type: 
  Country: None (occurrence: None)
  Receive Date: 20060328
  Receipt Date: 20060309
  Transmission Date: 20060701
  Serious: Yes (Other)
  Sender: FDA-Public Use
  Company Number: 2006035477

PATIENT
  Age: 35 Year
  Sex: Male

DRUGS (5)
  1. DOXORUBICIN HCL [Suspect]
     Indication: LYMPHOMA
  2. BLEOMYCIN [Suspect]
     Indication: LYMPHOMA
  3. DACARBAZINE [Suspect]
     Indication: LYMPHOMA
  4. VINBLASTINE SULFATE [Suspect]
     Indication: LYMPHOMA
  5. ANTIVIRALS FOR SYSTEMIC USE (ANTIVIRALS FOR SYSTEMIC USE) [Concomitant]

REACTIONS (6)
  - COAGULOPATHY [None]
  - ENCEPHALOPATHY [None]
  - HYPOTHERMIA [None]
  - LIVER FUNCTION TEST ABNORMAL [None]
  - LUNG INFILTRATION [None]
  - MUSCLE SPASTICITY [None]
